FAERS Safety Report 17807055 (Version 1)
Quarter: 2020Q2

REPORT INFORMATION
  Report Type: Spontaneous
  Country: US (occurrence: US)
  Receive Date: 20200520
  Receipt Date: 20200520
  Transmission Date: 20200714
  Serious: No
  Sender: FDA-Public Use
  Company Number: US-VERTEX PHARMACEUTICALS-2020-011002

PATIENT
  Age: 27 Year
  Sex: Female
  Weight: 52 kg

DRUGS (26)
  1. TOBI PODHALER [Concomitant]
     Active Substance: TOBRAMYCIN
  2. GENGRAF [Concomitant]
     Active Substance: CYCLOSPORINE
  3. CLARITIN [CLARITHROMYCIN] [Concomitant]
     Active Substance: CLARITHROMYCIN
  4. ASPIRIN (E.C.) [Concomitant]
     Active Substance: ASPIRIN
  5. POSACONAZOLE [Concomitant]
     Active Substance: POSACONAZOLE
  6. CELEXA [CELECOXIB] [Concomitant]
     Active Substance: CELECOXIB
  7. TRAZODONE HYDROCHLORIDE. [Concomitant]
     Active Substance: TRAZODONE HYDROCHLORIDE
  8. LUNESTA [Concomitant]
     Active Substance: ESZOPICLONE
  9. CREON [Concomitant]
     Active Substance: PANCRELIPASE AMYLASE\PANCRELIPASE LIPASE\PANCRELIPASE PROTEASE
     Dosage: 24-76-120K DR,
  10. CELLCEPT [Concomitant]
     Active Substance: MYCOPHENOLATE MOFETIL\MYCOPHENOLATE MOFETIL HYDROCHLORIDE
  11. FIORICET [Concomitant]
     Active Substance: ACETAMINOPHEN\BUTALBITAL\CAFFEINE
     Dosage: 50-300-40
  12. AMITRIPTYLINE HCL [Concomitant]
     Active Substance: AMITRIPTYLINE
  13. CYCLOSPORIN [Concomitant]
     Active Substance: CYCLOSPORINE
  14. VITAMIN D3 [Concomitant]
     Active Substance: CHOLECALCIFEROL
  15. PREDNISONE. [Concomitant]
     Active Substance: PREDNISONE
  16. MELATONIN [Concomitant]
     Active Substance: MELATONIN
  17. SIROLIMUS. [Concomitant]
     Active Substance: SIROLIMUS
  18. PROTONIX [OMEPRAZOLE] [Concomitant]
     Active Substance: OMEPRAZOLE
  19. PREVYMIS [Concomitant]
     Active Substance: LETERMOVIR
  20. GABAPENTIN. [Concomitant]
     Active Substance: GABAPENTIN
  21. ATIVAN [Concomitant]
     Active Substance: LORAZEPAM
  22. ACETAMINOPHEN. [Concomitant]
     Active Substance: ACETAMINOPHEN
  23. CARVEDILOL. [Concomitant]
     Active Substance: CARVEDILOL
  24. TRIKAFTA [Suspect]
     Active Substance: ELEXACAFTOR\IVACAFTOR\TEZACAFTOR
     Indication: CYSTIC FIBROSIS
     Dosage: 2 TABS (100 MG ELEXACAFTOR/ 50 MG TEZACAFTOR/ 75 MG IVACAFTOR) ON MON AND THURS
     Route: 048
     Dates: start: 20200309, end: 20200416
  25. ACTIGALL [Concomitant]
     Active Substance: URSODIOL
  26. IMITREX [Concomitant]
     Active Substance: SUMATRIPTAN SUCCINATE

REACTIONS (2)
  - Blood creatinine increased [Unknown]
  - Migraine [Recovered/Resolved]

NARRATIVE: CASE EVENT DATE: 202003
